FAERS Safety Report 9439036 (Version 3)
Quarter: 2013Q3

REPORT INFORMATION
  Report Type: Report from Study
  Country: US (occurrence: US)
  Receive Date: 20130802
  Receipt Date: 20130809
  Transmission Date: 20140515
  Serious: Yes (Hospitalization, Other)
  Sender: FDA-Public Use
  Company Number: US-ABBOTT-13P-163-1124527-00

PATIENT
  Age: 42 Year
  Sex: Female
  Weight: 61.29 kg

DRUGS (4)
  1. HUMIRA [Suspect]
     Indication: RHEUMATOID ARTHRITIS
     Dates: end: 200906
  2. HUMIRA [Suspect]
     Dates: start: 201012
  3. PREDNISONE [Concomitant]
     Indication: RHEUMATOID ARTHRITIS
     Dates: end: 20130201
  4. METHOTREXATE [Concomitant]
     Indication: PRODUCT USED FOR UNKNOWN INDICATION
     Dates: start: 2004, end: 2009

REACTIONS (11)
  - Haemorrhage [Unknown]
  - Cervix carcinoma [Unknown]
  - Uterine cancer [Unknown]
  - Papilloma viral infection [Unknown]
  - Precancerous cells present [Unknown]
  - Unevaluable event [Unknown]
  - Impaired healing [Unknown]
  - Haemorrhage [Unknown]
  - Vaginal disorder [Unknown]
  - Vaginal haemorrhage [Unknown]
  - Vaginal disorder [Unknown]
